FAERS Safety Report 11192616 (Version 1)
Quarter: 2015Q2

REPORT INFORMATION
  Report Type: Spontaneous
  Country: US (occurrence: None)
  Receive Date: 20150615
  Receipt Date: 20150615
  Transmission Date: 20150821
  Serious: Yes (Hospitalization)
  Sender: FDA-Public Use
  Company Number: None

PATIENT
  Age: 55 Year
  Sex: Male
  Weight: 99.5 kg

DRUGS (1)
  1. 5-FLUOROURACIL (5-FU) [Suspect]
     Active Substance: FLUOROURACIL
     Dosage: NOTE IS MADE THAT THE PATIENT HAD NOT YET STARTED THE CELEBREX PORTION OF THIS STUDY.
     Dates: end: 20150524

REACTIONS (3)
  - Clostridium test positive [None]
  - Neutropenia [None]
  - Pseudomembranous colitis [None]

NARRATIVE: CASE EVENT DATE: 20150605
